FAERS Safety Report 9197745 (Version 2)
Quarter: 2013Q2

REPORT INFORMATION
  Report Type: Spontaneous
  Country: DK (occurrence: SI)
  Receive Date: 20130328
  Receipt Date: 20130425
  Transmission Date: 20140414
  Serious: Yes (Hospitalization, Other)
  Sender: FDA-Public Use
  Company Number: SI-FRI-1000043815

PATIENT
  Sex: Male
  Weight: 58 kg

DRUGS (4)
  1. ESCITALOPRAM [Suspect]
     Indication: DEPRESSION
     Dosage: 10 MG
     Route: 048
     Dates: start: 201202, end: 20130209
  2. AMLESSA [Concomitant]
     Indication: HYPERTENSION
     Dosage: 4 MG
     Route: 048
  3. CONCOR COR [Concomitant]
     Indication: HYPERTENSION
     Dosage: 2.5 MG
     Route: 048
  4. ATORVASTATIN [Concomitant]
     Dosage: 20 MG
     Route: 048

REACTIONS (2)
  - Ischaemic stroke [Unknown]
  - Convulsion [Recovered/Resolved]
